FAERS Safety Report 5954441-1 (Version None)
Quarter: 2008Q4

REPORT INFORMATION
  Report Type: 
  Country: None (occurrence: None)
  Receive Date: 20081117
  Receipt Date: 20081104
  Transmission Date: 20090506
  Serious: Yes (Other)
  Sender: FDA-Public Use
  Company Number: BR-ROCHE-595495

PATIENT
  Age: 45 Year
  Sex: Female
  Weight: 86.4 kg

DRUGS (4)
  1. XENICAL [Suspect]
     Indication: WEIGHT CONTROL
     Route: 048
     Dates: start: 20081001
  2. METFORMIN HCL [Concomitant]
     Dosage: 2 TABS/DAY
     Route: 048
  3. DAONIL [Concomitant]
     Dosage: 4 TABS/DAY
     Route: 048
  4. INSULIN [Concomitant]
     Dosage: ACCORDING TO GLUCOSE LEVEL

REACTIONS (5)
  - ASTHENIA [None]
  - BLOOD GLUCOSE INCREASED [None]
  - HUNGER [None]
  - HYPERHIDROSIS [None]
  - WEIGHT INCREASED [None]
